FAERS Safety Report 7434606-2 (Version None)
Quarter: 2011Q2

REPORT INFORMATION
  Report Type: 
  Country: None (occurrence: None)
  Receive Date: 20110425
  Receipt Date: 20110413
  Transmission Date: 20111010
  Serious: Yes (Hospitalization)
  Sender: FDA-Public Use
  Company Number: US-BAYER-2011-032495

PATIENT
  Age: 64 Year
  Sex: Female
  Weight: 126 kg

DRUGS (4)
  1. SORAFENIB (RAF KINASE INHIBITOR) [Suspect]
     Dosage: 200 MG, BID
     Dates: start: 20091008, end: 20091012
  2. SORAFENIB (RAF KINASE INHIBITOR) [Suspect]
     Dosage: 200 MG, BID
     Dates: start: 20091014, end: 20091018
  3. BEVACIZUMAB [Suspect]
     Indication: COLORECTAL CANCER
     Dosage: 5 MG/KG, 90MIN DAY1
     Dates: start: 20091008, end: 20091029
  4. SORAFENIB (RAF KINASE INHIBITOR) [Suspect]
     Dosage: 200 UNK, UNK
     Dates: start: 20091029

REACTIONS (2)
  - PULMONARY EMBOLISM [None]
  - BREAST PAIN [None]
